FAERS Safety Report 11315016 (Version 1)
Quarter: 2015Q3

REPORT INFORMATION
  Report Type: Spontaneous
  Country: PT (occurrence: PT)
  Receive Date: 20150727
  Receipt Date: 20150727
  Transmission Date: 20151125
  Serious: Yes (Hospitalization)
  Sender: FDA-Public Use
  Company Number: PT-009507513-1507PRT011480

PATIENT
  Age: 31 Year
  Sex: Male

DRUGS (5)
  1. PYRAZINAMIDE. [Concomitant]
     Active Substance: PYRAZINAMIDE
     Indication: MENINGITIS TUBERCULOUS
     Dosage: 1500 MG, QD
     Route: 048
  2. RIFAMPIN. [Concomitant]
     Active Substance: RIFAMPIN
     Indication: MENINGITIS TUBERCULOUS
     Dosage: 600 MG, UNK
  3. DEXAMETHASONE. [Suspect]
     Active Substance: DEXAMETHASONE
     Indication: MENINGITIS TUBERCULOUS
     Dosage: 4 MG, Q6H
     Route: 042
  4. ETHAMBUTOL [Concomitant]
     Active Substance: ETHAMBUTOL HYDROCHLORIDE
     Indication: MENINGITIS TUBERCULOUS
     Dosage: 1200 MG
  5. ISONIAZID. [Concomitant]
     Active Substance: ISONIAZID
     Indication: MENINGITIS TUBERCULOUS
     Dosage: 300 MG, UNK

REACTIONS (1)
  - Peritonitis [Recovered/Resolved]
